FAERS Safety Report 10626395 (Version 1)
Quarter: 2014Q4

REPORT INFORMATION
  Report Type: Spontaneous
  Country: US (occurrence: None)
  Receive Date: 20141121
  Receipt Date: 20141121
  Transmission Date: 20150529
  Serious: No
  Sender: FDA-Public Use
  Company Number: 163-10004-14064568

PATIENT
  Age: 59 Year
  Sex: Female
  Weight: 113.4 kg

DRUGS (13)
  1. LEXAPRO [Concomitant]
     Active Substance: ESCITALOPRAM OXALATE
  2. NAPROSYN (NAPROXEN) [Concomitant]
  3. FOLIC ACID. [Concomitant]
     Active Substance: FOLIC ACID
  4. BENICAR HCT (BENICAR HCT) [Concomitant]
  5. LASIX [Concomitant]
     Active Substance: FUROSEMIDE
  6. OTEZLA [Suspect]
     Active Substance: APREMILAST
     Indication: PSORIATIC ARTHROPATHY
     Route: 048
     Dates: start: 20140619
  7. NITRO (GLYCERYL TRINITRATE) (POULTICE OR PATCH) [Concomitant]
  8. SYNTHROID [Concomitant]
     Active Substance: LEVOTHYROXINE SODIUM
  9. KCL (POTASSIUM CHLORIDE) [Concomitant]
  10. MTX (METHOTREXATE SODIUM) [Concomitant]
  11. CRESTOR [Concomitant]
     Active Substance: ROSUVASTATIN CALCIUM
  12. ASPIRIN (ACETYLSALICYLIC ACID) [Concomitant]
     Active Substance: ASPIRIN
  13. METFORMIN [Concomitant]
     Active Substance: METFORMIN HYDROCHLORIDE

REACTIONS (2)
  - Headache [None]
  - Abdominal pain upper [None]

NARRATIVE: CASE EVENT DATE: 20140621
